FAERS Safety Report 11294505 (Version 1)
Quarter: 2015Q3

REPORT INFORMATION
  Report Type: Report from Study
  Country: US (occurrence: None)
  Receive Date: 20150721
  Receipt Date: 20150721
  Transmission Date: 20151125
  Serious: Yes (Hospitalization, Other)
  Sender: FDA-Public Use
  Company Number: 2015-10739

PATIENT
  Age: 74 Year
  Sex: Male
  Weight: 95.2 kg

DRUGS (22)
  1. DOXYCYCLINE. [Concomitant]
     Active Substance: DOXYCYCLINE
  2. OMEPRAZOLE (OMEPRAZOLE) [Concomitant]
     Active Substance: OMEPRAZOLE
  3. SENOKOT-S (DOCUSATE SODIUM, SENNA ALEXANDRINA) [Concomitant]
  4. ROPINIROLE HYDROCHLORIDE (ROPINIROLE HYDROCHLORIDE) [Concomitant]
  5. SYNTHROID [Concomitant]
     Active Substance: LEVOTHYROXINE SODIUM
  6. JANTOVEN (WARFARIN SODIUM) [Concomitant]
  7. EYLEA [Suspect]
     Active Substance: AFLIBERCEPT
     Indication: DIABETIC RETINAL OEDEMA
  8. BUMETANIDE (BUMETANIDE) [Concomitant]
     Active Substance: BUMETANIDE
  9. HYDROCODONE W/APAP (HYDROCODONE BITARTRATE, PARACETAMOL) [Concomitant]
  10. TRAMADOL HYDROCHLORIDE. [Concomitant]
     Active Substance: TRAMADOL HYDROCHLORIDE
  11. ASPIRIN (ACETYLSALICYLIC ACID) [Concomitant]
     Active Substance: ASPIRIN
  12. MULTIVITAMIN (NO VIT K) CHOLEST. FORM /07504101/ (VITAMINS NOS) [Concomitant]
  13. WHITE PETROLATUM (WHITE SOFT PARAFFIN) [Concomitant]
  14. AMIODARONE (AMIODARONE) [Suspect]
     Active Substance: AMIODARONE
     Indication: ATRIAL FIBRILLATION
     Dosage: 200 MG MILLIGRAM(S), QD, ORAL
     Route: 048
     Dates: start: 20140313, end: 201502
  15. HUMALOG [Concomitant]
     Active Substance: INSULIN LISPRO
  16. FLORANEX (LACTOBACILLUS ACIDOPHILUS, LACTOBACILLUS BULGARICUS) [Concomitant]
  17. PULMICORT TURBUHALER [Concomitant]
     Active Substance: BUDESONIDE
  18. SPIRONOLACTONE (SPIRONOLACTONE) [Concomitant]
     Active Substance: SPIRONOLACTONE
  19. SYMBICORT [Concomitant]
     Active Substance: BUDESONIDE\FORMOTEROL FUMARATE DIHYDRATE
  20. TAMSULOSIN (TAMSULOSIN) [Concomitant]
     Active Substance: TAMSULOSIN
  21. METHOCARBAMOL (METHOCARBAMOL) [Concomitant]
  22. MAXIPIME (CEFEPIME HYDROCHLORIDE) [Concomitant]

REACTIONS (6)
  - Chronic obstructive pulmonary disease [None]
  - Toxicity to various agents [None]
  - Pulmonary fibrosis [None]
  - Pleural effusion [None]
  - Atelectasis [None]
  - Haemoglobin decreased [None]

NARRATIVE: CASE EVENT DATE: 20150130
